FAERS Safety Report 24084373 (Version 1)
Quarter: 2024Q3

REPORT INFORMATION
  Report Type: Spontaneous
  Country: CH (occurrence: CH)
  Receive Date: 20240712
  Receipt Date: 20240712
  Transmission Date: 20241017
  Serious: Yes (Other)
  Sender: ENDO
  Company Number: CH-ENDO USA, INC.-2024-002854

PATIENT
  Age: 51 Year
  Sex: Female

DRUGS (2)
  1. VENLAFAXINE HYDROCHLORIDE [Suspect]
     Active Substance: VENLAFAXINE HYDROCHLORIDE
     Indication: Product used for unknown indication
     Dosage: 150 MILLIGRAM, UNKNOWN (FOR MANY YEARS)
     Route: 065
  2. VENLAFAXINE HYDROCHLORIDE [Suspect]
     Active Substance: VENLAFAXINE HYDROCHLORIDE
     Dosage: 75 MILLIGRAM, UNKNOWN
     Route: 065
     Dates: start: 2023

REACTIONS (1)
  - Left ventricular hypertrophy [Recovered/Resolved]

NARRATIVE: CASE EVENT DATE: 20230501
